FAERS Safety Report 9383982 (Version 1)
Quarter: 2013Q3

REPORT INFORMATION
  Report Type: Spontaneous
  Country: NO (occurrence: NO)
  Receive Date: 20130705
  Receipt Date: 20130705
  Transmission Date: 20140515
  Serious: Yes (Hospitalization, Other)
  Sender: FDA-Public Use
  Company Number: NO-JNJFOC-20130615376

PATIENT
  Age: 55 Year
  Sex: Female

DRUGS (6)
  1. REMICADE [Suspect]
     Indication: CROHN^S DISEASE
     Dosage: EVERY THIRD MONTH
     Route: 042
  2. REMICADE [Suspect]
     Indication: CROHN^S DISEASE
     Route: 042
     Dates: end: 20130124
  3. REMICADE [Suspect]
     Indication: CROHN^S DISEASE
     Route: 042
     Dates: start: 20040331, end: 20130124
  4. SOLU CORTEF [Suspect]
     Indication: PRODUCT USED FOR UNKNOWN INDICATION
     Route: 065
  5. METHOTREXATE [Concomitant]
     Dosage: SEVERAL YEARS AGO
     Route: 065
  6. FOLIC ACID [Concomitant]
     Dosage: SEVERAL YEARS AGO
     Route: 065

REACTIONS (6)
  - Ileus [Unknown]
  - Abscess oral [Unknown]
  - Gingivitis [Unknown]
  - Angioedema [Unknown]
  - Joint swelling [Unknown]
  - Arthralgia [Unknown]
